FAERS Safety Report 19750847 (Version 1)
Quarter: 2021Q3

REPORT INFORMATION
  Report Type: Spontaneous
  Country: CN (occurrence: CN)
  Receive Date: 20210826
  Receipt Date: 20210826
  Transmission Date: 20211014
  Serious: Yes (Other)
  Sender: FDA-Public Use
  Company Number: CN-PFIZER INC-202101050447

PATIENT
  Age: 9 Month
  Sex: Male
  Weight: 4.5 kg

DRUGS (4)
  1. LINEZOLID. [Suspect]
     Active Substance: LINEZOLID
     Indication: ANTI-INFECTIVE THERAPY
     Dosage: 20 ML, THRICE A DAY (Q8H)
     Route: 041
     Dates: start: 20210731, end: 20210807
  2. LINEZOLID. [Suspect]
     Active Substance: LINEZOLID
     Indication: ANTI-INFECTIVE THERAPY
     Dosage: 45 MG, FOUR TIMES A DAY (Q6H)
     Route: 048
     Dates: start: 20210807, end: 20210811
  3. NORMAL SALINE [Concomitant]
     Active Substance: SODIUM CHLORIDE
     Indication: VEHICLE SOLUTION USE
     Dosage: 1 ML, 1X/DAY
     Route: 041
     Dates: start: 20210731, end: 20210811
  4. CEFTAZIDIME. [Suspect]
     Active Substance: CEFTAZIDIME
     Indication: ANTI-INFECTIVE THERAPY
     Dosage: 0.22 G, ONCE A DAY (QD)
     Route: 041
     Dates: start: 20210731, end: 20210811

REACTIONS (3)
  - Platelet count decreased [Not Recovered/Not Resolved]
  - Off label use [Unknown]
  - Skin haemorrhage [Not Recovered/Not Resolved]

NARRATIVE: CASE EVENT DATE: 20210807
